FAERS Safety Report 7530258-1 (Version None)
Quarter: 2011Q2

REPORT INFORMATION
  Report Type: 
  Country: None (occurrence: None)
  Receive Date: 20110607
  Receipt Date: 20110525
  Transmission Date: 20111010
  Serious: Yes (Other)
  Sender: FDA-Public Use
  Company Number: US-CELGENEUS-163-21880-11050640

PATIENT
  Sex: Male

DRUGS (2)
  1. ASPIRIN [Suspect]
     Indication: CORONARY ARTERY DISEASE
     Dosage: 325 MILLIGRAM
     Route: 065
  2. REVLIMID [Suspect]
     Indication: MULTIPLE MYELOMA
     Dosage: 5 MILLIGRAM
     Route: 048
     Dates: start: 20110411

REACTIONS (1)
  - HAEMORRHAGE [None]
